FAERS Safety Report 18452308 (Version 1)
Quarter: 2020Q4

REPORT INFORMATION
  Report Type: Spontaneous
  Country: US (occurrence: US)
  Receive Date: 20201102
  Receipt Date: 20201102
  Transmission Date: 20210114
  Serious: No
  Sender: FDA-Public Use
  Company Number: US-ACCORD-195803

PATIENT
  Age: 82 Year
  Sex: Male

DRUGS (1)
  1. ESCITALOPRAM ACCORD [Suspect]
     Active Substance: ESCITALOPRAM OXALATE
     Indication: ANXIETY
     Dosage: STRENGTH: 10 MG ONCE A DAY
     Dates: start: 20200803

REACTIONS (2)
  - Sleep disorder [Unknown]
  - Condition aggravated [Unknown]
